FAERS Safety Report 23940482 (Version 1)
Quarter: 2024Q2

REPORT INFORMATION
  Report Type: Spontaneous
  Country: AT (occurrence: AT)
  Receive Date: 20240605
  Receipt Date: 20240605
  Transmission Date: 20240716
  Serious: Yes (Other)
  Sender: FDA-Public Use
  Company Number: AT-ABBVIE-5746668

PATIENT
  Age: 49 Year
  Sex: Male
  Weight: 96 kg

DRUGS (3)
  1. ENTYVIO [Suspect]
     Active Substance: VEDOLIZUMAB
     Indication: Product used for unknown indication
     Dosage: UNK
     Route: 065
     Dates: start: 202210, end: 202309
  2. STELARA [Suspect]
     Active Substance: USTEKINUMAB
     Indication: Product used for unknown indication
     Dosage: UNK
     Route: 065
     Dates: start: 201907, end: 202209
  3. HUMIRA [Suspect]
     Active Substance: ADALIMUMAB
     Indication: Crohn^s disease
     Dosage: UNK
     Route: 058
     Dates: start: 201408, end: 201906

REACTIONS (5)
  - Crohn^s disease [Recovering/Resolving]
  - Therapeutic product effect decreased [Unknown]
  - Defaecation urgency [Recovering/Resolving]
  - Faecal calprotectin increased [Recovering/Resolving]
  - C-reactive protein increased [Unknown]
